FAERS Safety Report 5992099-6 (Version None)
Quarter: 2008Q4

REPORT INFORMATION
  Report Type: 
  Country: None (occurrence: None)
  Receive Date: 20081211
  Receipt Date: 20081201
  Transmission Date: 20090506
  Serious: Yes (Hospitalization)
  Sender: FDA-Public Use
  Company Number: FR-AMGEN-US322465

PATIENT
  Sex: Female

DRUGS (2)
  1. ENBREL [Suspect]
     Indication: RHEUMATOID ARTHRITIS
     Dosage: LYOPHILIZED : 50 MG ONCE WEEKLY
     Route: 058
     Dates: start: 20040515, end: 20080701
  2. ORENCIA [Concomitant]

REACTIONS (4)
  - DYSPNOEA [None]
  - LUNG DISORDER [None]
  - RALES [None]
  - WHEEZING [None]
